FAERS Safety Report 6802071-1 (Version None)
Quarter: 2010Q2

REPORT INFORMATION
  Report Type: 
  Country: None (occurrence: None)
  Receive Date: 20100629
  Receipt Date: 20080108
  Transmission Date: 20101027
  Serious: No
  Sender: FDA-Public Use
  Company Number: US-PFIZER INC-2007068055

PATIENT
  Sex: Male
  Weight: 84.1 kg

DRUGS (8)
  1. VIAGRA [Suspect]
     Indication: ERECTILE DYSFUNCTION
     Route: 048
     Dates: start: 20000801
  2. PLAVIX [Concomitant]
  3. FOLIC ACID [Concomitant]
  4. SIMVASTATIN [Concomitant]
  5. NAPROSYN [Concomitant]
  6. ATROVENT [Concomitant]
     Route: 055
  7. TRIAZOLAM [Concomitant]
  8. ZOCOR [Concomitant]

REACTIONS (7)
  - BLOOD BILIRUBIN INCREASED [None]
  - BLOOD UREA INCREASED [None]
  - DERMATITIS [None]
  - DRUG INEFFECTIVE [None]
  - FEELING HOT [None]
  - FLUSHING [None]
  - HERPES SIMPLEX SEROLOGY POSITIVE [None]
